FAERS Safety Report 24339169 (Version 1)
Quarter: 2024Q3

REPORT INFORMATION
  Report Type: Report from Study
  Country: US (occurrence: US)
  Receive Date: 20240919
  Receipt Date: 20240919
  Transmission Date: 20241017
  Serious: Yes (Other)
  Sender: JOHNSON AND JOHNSON
  Company Number: US-JNJFOC-20240925706

PATIENT

DRUGS (1)
  1. RISPERDAL [Suspect]
     Active Substance: RISPERIDONE
     Indication: Product used for unknown indication
     Route: 065

REACTIONS (6)
  - Coma [Unknown]
  - Dystonia [Unknown]
  - Muscle rigidity [Unknown]
  - Tachycardia [Unknown]
  - Somnolence [Unknown]
  - Adverse drug reaction [Unknown]
